FAERS Safety Report 16780884 (Version 4)
Quarter: 2020Q2

REPORT INFORMATION
  Report Type: Spontaneous
  Country: CA (occurrence: CA)
  Receive Date: 20190906
  Receipt Date: 20200522
  Transmission Date: 20200713
  Serious: Yes (Other)
  Sender: FDA-Public Use
  Company Number: CA-PFIZER INC-2018283651

PATIENT
  Age: 44 Year
  Sex: Female

DRUGS (6)
  1. SYNTHROID [Concomitant]
     Active Substance: LEVOTHYROXINE SODIUM
     Dosage: 0.15 MG, DAILY
     Route: 048
  2. CORTISONE [Concomitant]
     Active Substance: CORTISONE
     Dosage: 31.25-37.5MG, 3X/DAY
     Route: 048
  3. ESTRACE [Concomitant]
     Active Substance: ESTRADIOL
     Dosage: 0.5 MG, DAILY
  4. GENOTROPIN GOQUICK [Suspect]
     Active Substance: SOMATROPIN
     Indication: GROWTH HORMONE DEFICIENCY
     Dosage: 0.4 MG, DAILY (7X/WEEK)
     Route: 058
     Dates: start: 20180601
  5. DEXILANT [Concomitant]
     Active Substance: DEXLANSOPRAZOLE
     Dosage: 60 MG, DAILY
     Route: 048
  6. APO-MEDROXY [Concomitant]
     Active Substance: MEDROXYPROGESTERONE ACETATE
     Dosage: 2.5 MG, DAILY

REACTIONS (10)
  - Brain neoplasm [Unknown]
  - Peripheral swelling [Not Recovered/Not Resolved]
  - Device issue [Recovered/Resolved]
  - Scoliosis [Unknown]
  - Pituitary tumour recurrent [Unknown]
  - Osteopenia [Unknown]
  - Injection site pain [Recovered/Resolved]
  - Product dose omission [Unknown]
  - Bone density decreased [Unknown]
  - Contusion [Unknown]

NARRATIVE: CASE EVENT DATE: 2018
